FAERS Safety Report 7393879-5 (Version None)
Quarter: 2011Q2

REPORT INFORMATION
  Report Type: 
  Country: None (occurrence: None)
  Receive Date: 20110405
  Receipt Date: 20110331
  Transmission Date: 20111010
  Serious: Yes (Life-Threatening, Hospitalization)
  Sender: FDA-Public Use
  Company Number: DE-SANOFI-AVENTIS-2011SA006887

PATIENT
  Age: 60 Year
  Sex: Male
  Weight: 80 kg

DRUGS (5)
  1. MULTAQ [Suspect]
     Indication: ATRIAL FIBRILLATION
     Route: 048
     Dates: start: 20100801
  2. METFORMIN HCL [Concomitant]
     Route: 065
  3. BISOPROLOL FUMARATE [Concomitant]
     Route: 048
  4. MARCUMAR [Concomitant]
     Dosage: DOSAGE: ACCORDING TO INR
     Route: 048
  5. INSULIN [Concomitant]
     Indication: TYPE 2 DIABETES MELLITUS

REACTIONS (3)
  - CHOLESTASIS [None]
  - BLOOD ALKALINE PHOSPHATASE INCREASED [None]
  - TRANSAMINASES INCREASED [None]
